FAERS Safety Report 14450347 (Version 1)
Quarter: 2018Q1

REPORT INFORMATION
  Report Type: Report from Study
  Country: US (occurrence: US)
  Receive Date: 20180129
  Receipt Date: 20180129
  Transmission Date: 20180509
  Serious: Yes (Hospitalization, Other)
  Sender: FDA-Public Use
  Company Number: US-TAKEDA-2018TUS001837

PATIENT
  Age: 50 Year
  Sex: Female

DRUGS (2)
  1. VEDOLIZUMAB [Suspect]
     Active Substance: VEDOLIZUMAB
     Indication: COLITIS ULCERATIVE
     Dosage: 300 MG, UNK
     Route: 042
     Dates: start: 20170928
  2. NATURE-THROID [Concomitant]
     Active Substance: THYROID, PORCINE
     Dosage: UNK

REACTIONS (5)
  - Clostridium difficile infection [Recovered/Resolved]
  - Dysphagia [Recovered/Resolved]
  - Renal cell carcinoma [Unknown]
  - Anxiety [Unknown]
  - Hypophagia [Recovered/Resolved]

NARRATIVE: CASE EVENT DATE: 20171109
